FAERS Safety Report 8174304-3 (Version None)
Quarter: 2012Q1

REPORT INFORMATION
  Report Type: 
  Country: None (occurrence: None)
  Receive Date: 20120229
  Receipt Date: 20120221
  Transmission Date: 20120608
  Serious: Yes (Other)
  Sender: FDA-Public Use
  Company Number: US-JNJFOC-20120211911

PATIENT
  Age: 2 Year
  Sex: Male
  Weight: 13.15 kg

DRUGS (2)
  1. CHILDREN'S TYLENOL SUSPENSION [Suspect]
     Route: 048
  2. CHILDREN'S TYLENOL SUSPENSION [Suspect]
     Indication: PAIN
     Dosage: DOSE: 1 TEASPOON
     Route: 048
     Dates: start: 20120207, end: 20120207

REACTIONS (2)
  - SALMONELLOSIS [None]
  - TRANSMISSION OF AN INFECTIOUS AGENT VIA A MEDICINAL PRODUCT [None]
